FAERS Safety Report 6209969-6 (Version None)
Quarter: 2009Q2

REPORT INFORMATION
  Report Type: 
  Country: None (occurrence: None)
  Receive Date: 20090601
  Receipt Date: 20090519
  Transmission Date: 20091009
  Serious: Yes (Other)
  Sender: FDA-Public Use
  Company Number: DE-PFIZER INC-2008101116

PATIENT
  Age: 66 Year

DRUGS (1)
  1. LYRICA [Suspect]
     Indication: POST HERPETIC NEURALGIA
     Route: 048

REACTIONS (3)
  - ARRHYTHMIA [None]
  - ASTHMA [None]
  - RESPIRATORY DISORDER [None]
